FAERS Safety Report 10239826 (Version 2)
Quarter: 2014Q2

REPORT INFORMATION
  Report Type: Spontaneous
  Country: IT (occurrence: IT)
  Receive Date: 20140616
  Receipt Date: 20140620
  Transmission Date: 20141212
  Serious: Yes (Hospitalization, Other)
  Sender: FDA-Public Use
  Company Number: IT-MERCK-1406ITA007132

PATIENT
  Age: 80 Year
  Sex: Female

DRUGS (27)
  1. INVANZ [Suspect]
     Indication: PNEUMONIA BACTERIAL
     Dosage: 1 G, QD
     Route: 042
     Dates: start: 20140429, end: 20140527
  2. CLEXANE (ENOXAPARIN SODIUM) [Suspect]
     Indication: PROPHYLAXIS
     Dosage: 4000 IU, QD
     Route: 058
     Dates: start: 20140417, end: 20140418
  3. CALCIPARINA [Suspect]
     Indication: DEEP VEIN THROMBOSIS
     Dosage: 0.6 ML, QD
     Route: 058
     Dates: start: 20140513, end: 20140605
  4. TAZOCIN [Suspect]
     Indication: PNEUMONIA BACTERIAL
     Dosage: (2G+0.250/4ML) 9 G, QD
     Route: 030
     Dates: start: 20140408, end: 20140428
  5. CONTRAMAL [Suspect]
     Dosage: 20 DF, QD
     Route: 048
     Dates: start: 20140409, end: 20140527
  6. LEVOFLOXACIN [Suspect]
     Indication: PNEUMONIA BACTERIAL
     Dosage: 1 DF, QD (POSOLOGY WAS VARIABLE IN FUNCTION OF THE VALUES OF CREATININE)
     Route: 042
  7. TIKLID [Suspect]
     Indication: THROMBOCYTOPENIA
     Dosage: 2 DF, QD
     Route: 048
     Dates: end: 20140428
  8. CLENIL (BECLOMETHASONE DIPROPIONATE) [Suspect]
     Dosage: UNK, PRN
     Dates: start: 20140412, end: 20140516
  9. ATEM [Suspect]
     Dosage: UNK, PRN
     Dates: start: 20140412, end: 20140516
  10. BRONCOVALEAS [Suspect]
     Dosage: 7 DF, UNK
     Dates: start: 20140412, end: 20140516
  11. CETIRIZINE HYDROCHLORIDE [Suspect]
     Dosage: UNK, QD
     Route: 048
     Dates: start: 201405
  12. ACETYLCYSTEINE [Suspect]
     Dosage: UNK
     Dates: start: 20140514, end: 20140515
  13. ACETYLCYSTEINE [Suspect]
     Dosage: UNK
     Dates: start: 20140514, end: 20140515
  14. KANRENOL [Suspect]
     Dosage: 1 DOSE UNIT, QD
     Dates: start: 20140512, end: 20140525
  15. MOVICOL [Suspect]
     Dosage: 2 SACHETS AS NEEDED
     Dates: start: 20140513, end: 20140519
  16. BRONCOVALEAS [Suspect]
     Dosage: 7 DROPS, UNK
     Dates: start: 20140412, end: 20140516
  17. IOMERON [Suspect]
     Indication: IMAGING PROCEDURE
     Dosage: 30 ML, UNK
     Route: 042
     Dates: start: 20140514
  18. VANCOMYCIN [Suspect]
     Indication: PNEUMONIA BACTERIAL
     Dosage: 2 G, QD
     Route: 042
     Dates: start: 20140517, end: 20140527
  19. ACICLIN [Suspect]
     Indication: GENITAL HERPES
     Dosage: 1200 MG, QD
     Route: 048
     Dates: start: 20140511, end: 20140518
  20. BUDESONIDE [Concomitant]
     Dosage: UNK
     Route: 055
  21. SEREVENT [Concomitant]
     Indication: ASTHMA
     Dosage: 4 DF, UNK
     Route: 055
  22. OMEPRAZOLE [Concomitant]
     Dosage: 40 MG, UNK
     Route: 048
  23. XAGRID [Concomitant]
     Indication: MYELOPROLIFERATIVE DISORDER
     Dosage: 0.5 MG, UNK
     Route: 048
  24. FOLINA (FOLIC ACID) [Concomitant]
     Route: 048
  25. TAVOR (FLUCONAZOLE) [Concomitant]
     Indication: INSOMNIA
     Dosage: 2.5 MG, UNK
     Route: 048
  26. LASIX (FUROSEMIDE SODIUM) [Concomitant]
     Dosage: 20MG/ML
     Route: 030
  27. DIETARY SUPPLEMENT (UNSPECIFIED) [Concomitant]
     Dosage: UNK, QD
     Route: 048

REACTIONS (4)
  - Generalised oedema [Recovering/Resolving]
  - Skin exfoliation [Recovering/Resolving]
  - Bloody discharge [Recovering/Resolving]
  - Drug reaction with eosinophilia and systemic symptoms [Recovering/Resolving]
